FAERS Safety Report 6651171-8 (Version None)
Quarter: 2010Q1

REPORT INFORMATION
  Report Type: 
  Country: None (occurrence: None)
  Receive Date: 20100325
  Receipt Date: 20100318
  Transmission Date: 20100710
  Serious: Yes (Life-Threatening, Hospitalization)
  Sender: FDA-Public Use
  Company Number: FR-KINGPHARMUSA00001-K201000323

PATIENT
  Age: 61 Year
  Sex: Male

DRUGS (13)
  1. ALTACE [Suspect]
     Indication: HYPERTENSION
     Dosage: 10 MG, QD
     Route: 048
     Dates: end: 20090625
  2. LASIX [Suspect]
     Indication: HYPERTENSION
     Dosage: 40 MG, QD
     Route: 048
     Dates: end: 20090625
  3. COLCHIMAX [Suspect]
     Indication: BONE PAIN
     Dosage: UNK
     Dates: end: 20090625
  4. ALDACTONE [Suspect]
     Indication: HYPERTENSION
     Dosage: 25 MG, QD
     Route: 048
     Dates: end: 20090625
  5. PLAVIX [Concomitant]
  6. KARDEGIC [Concomitant]
  7. STILNOX [Concomitant]
  8. CORDARONE [Concomitant]
  9. NEXIUM [Concomitant]
  10. INSULIN [Concomitant]
  11. KREDEX [Concomitant]
  12. CRESTOR [Concomitant]
  13. FONZYLANE [Concomitant]

REACTIONS (5)
  - DEHYDRATION [None]
  - DIARRHOEA [None]
  - PERIARTICULAR DISORDER [None]
  - RENAL FAILURE ACUTE [None]
  - VOMITING [None]
